FAERS Safety Report 8319604 (Version 3)
Quarter: 2013Q2

REPORT INFORMATION
  Report Type: Spontaneous
  Country: US (occurrence: US)
  Receive Date: 20120103
  Receipt Date: 20130528
  Transmission Date: 20140414
  Serious: Yes (Hospitalization)
  Sender: FDA-Public Use
  Company Number: US-GLAXOSMITHKLINE-A0959627A

PATIENT
  Sex: Female

DRUGS (2)
  1. ALBUTEROL [Suspect]
     Indication: PRODUCT USED FOR UNKNOWN INDICATION
     Route: 055
  2. INFLUENZA VACCINE [Concomitant]

REACTIONS (4)
  - Pneumonia [Unknown]
  - Apparent death [Unknown]
  - Cerebrovascular accident [Unknown]
  - Nasopharyngitis [Unknown]
